FAERS Safety Report 19178308 (Version 7)
Quarter: 2022Q4

REPORT INFORMATION
  Report Type: Report from Study
  Country: US (occurrence: US)
  Receive Date: 20210426
  Receipt Date: 20221019
  Transmission Date: 20230113
  Serious: Yes (Hospitalization, Other)
  Sender: FDA-Public Use
  Company Number: US-NOVARTISTESTPH-NVSC2021US092798

PATIENT
  Age: 60 Year
  Sex: Female

DRUGS (5)
  1. GILENYA [Suspect]
     Active Substance: FINGOLIMOD HYDROCHLORIDE
     Indication: Relapsing-remitting multiple sclerosis
     Dosage: 0.5 MG, QD
     Route: 048
  2. GILENYA [Suspect]
     Active Substance: FINGOLIMOD HYDROCHLORIDE
     Dosage: 0.5 MG, QD
     Route: 048
     Dates: start: 20210409
  3. GILENYA [Suspect]
     Active Substance: FINGOLIMOD HYDROCHLORIDE
     Dosage: 0.5 MG, QD
     Route: 048
     Dates: start: 20210422
  4. ZOLOFT [Concomitant]
     Active Substance: SERTRALINE HYDROCHLORIDE
     Indication: Product used for unknown indication
     Dosage: 1 DOSAGE FORM, QD
     Route: 048
  5. LITHIUM CARBONATE [Concomitant]
     Active Substance: LITHIUM CARBONATE
     Indication: Product used for unknown indication
     Dosage: 1 DOSAGE FORM, QD
     Route: 048

REACTIONS (19)
  - Multiple sclerosis relapse [Unknown]
  - Diplopia [Unknown]
  - Somnolence [Unknown]
  - Cranial nerve disorder [Unknown]
  - Tooth disorder [Unknown]
  - Gait disturbance [Unknown]
  - Dysgraphia [Unknown]
  - Malaise [Unknown]
  - Fatigue [Unknown]
  - Herpes zoster [Unknown]
  - Tremor [Unknown]
  - Urinary incontinence [Unknown]
  - Trigeminal neuralgia [Unknown]
  - Disturbance in attention [Unknown]
  - Depression [Unknown]
  - Balance disorder [Unknown]
  - Vision blurred [Unknown]
  - Product dose omission issue [Unknown]
  - Drug ineffective [Unknown]

NARRATIVE: CASE EVENT DATE: 20220401
